FAERS Safety Report 5953191-5 (Version None)
Quarter: 2008Q4

REPORT INFORMATION
  Report Type: 
  Country: None (occurrence: None)
  Receive Date: 20081031
  Receipt Date: 20080305
  Transmission Date: 20090506
  Serious: Yes (Other)
  Sender: FDA-Public Use
  Company Number: HQWYE628208DEC06

PATIENT
  Age: 63 Year
  Sex: Female
  Weight: 42.68 kg

DRUGS (1)
  1. PREMARIN [Suspect]
     Indication: ATROPHY
     Dosage: VAGINAL
     Route: 067
     Dates: start: 20061125, end: 20061127

REACTIONS (1)
  - APPLICATION SITE SWELLING [None]
